FAERS Safety Report 13669216 (Version 2)
Quarter: 2017Q2

REPORT INFORMATION
  Report Type: Spontaneous
  Country: CN (occurrence: CN)
  Receive Date: 20170620
  Receipt Date: 20170623
  Transmission Date: 20170830
  Serious: No
  Sender: FDA-Public Use
  Company Number: CN-PFIZER INC-2017267450

PATIENT
  Age: 56 Year
  Sex: Female

DRUGS (1)
  1. AMIODARONE HCL [Suspect]
     Active Substance: AMIODARONE HYDROCHLORIDE
     Indication: CARDIOVERSION
     Dosage: 0.2 G, DAILY
     Dates: start: 20170310, end: 20170310

REACTIONS (3)
  - Atrioventricular block [Recovering/Resolving]
  - Chest discomfort [Recovering/Resolving]
  - Hyperhidrosis [Recovering/Resolving]

NARRATIVE: CASE EVENT DATE: 20170310
